FAERS Safety Report 15549039 (Version 4)
Quarter: 2018Q4

REPORT INFORMATION
  Report Type: Spontaneous
  Country: US (occurrence: US)
  Receive Date: 20181025
  Receipt Date: 20181218
  Transmission Date: 20190205
  Serious: Yes (Hospitalization)
  Sender: FDA-Public Use
  Company Number: US-CELGENEUS-USA-20181006713

PATIENT
  Age: 57 Year
  Sex: Male

DRUGS (2)
  1. OTEZLA [Suspect]
     Active Substance: APREMILAST
     Indication: PSORIASIS
     Dosage: 60 MILLIGRAM
     Route: 048
     Dates: start: 20180608
  2. OTEZLA [Suspect]
     Active Substance: APREMILAST
     Indication: PSORIASIS

REACTIONS (6)
  - Laryngitis [Unknown]
  - Pollakiuria [Unknown]
  - Lethargy [Unknown]
  - Depression [Unknown]
  - Thrombosis [Unknown]
  - Diarrhoea [Unknown]

NARRATIVE: CASE EVENT DATE: 20181001
